FAERS Safety Report 5571117-3 (Version None)
Quarter: 2007Q4

REPORT INFORMATION
  Report Type: 
  Country: None (occurrence: None)
  Receive Date: 20071221
  Receipt Date: 20071218
  Transmission Date: 20080405
  Serious: Yes (Hospitalization, Other)
  Sender: FDA-Public Use
  Company Number: US-MERCK-0707USA00483

PATIENT
  Age: 73 Year
  Sex: Female

DRUGS (6)
  1. FOSAMAX [Suspect]
     Indication: OSTEOPOROSIS
     Route: 048
     Dates: start: 20001003, end: 20020501
  2. FOSAMAX [Suspect]
     Route: 048
     Dates: start: 20020501, end: 20060501
  3. THYROID [Concomitant]
     Indication: THYROID DISORDER
     Route: 065
     Dates: start: 19970101
  4. PREMARIN [Concomitant]
     Route: 065
     Dates: start: 19650101
  5. METOPROLOL [Concomitant]
     Route: 065
     Dates: start: 20050101
  6. BONIVA [Concomitant]
     Route: 065
     Dates: start: 20060627

REACTIONS (9)
  - CARDIAC DISORDER [None]
  - DYSPEPSIA [None]
  - FUNGAL INFECTION [None]
  - OEDEMA MOUTH [None]
  - ORAL INFECTION [None]
  - OSTEONECROSIS [None]
  - PAIN IN JAW [None]
  - RESORPTION BONE INCREASED [None]
  - TEMPOROMANDIBULAR JOINT SYNDROME [None]
